FAERS Safety Report 9517171 (Version 1)
Quarter: 2013Q3

REPORT INFORMATION
  Report Type: Spontaneous
  Country: US (occurrence: US)
  Receive Date: 20130911
  Receipt Date: 20130911
  Transmission Date: 20140515
  Serious: Yes (Other)
  Sender: FDA-Public Use
  Company Number: US-BAYER-2013-108583

PATIENT
  Sex: Male
  Weight: 136 kg

DRUGS (18)
  1. BETASERON [Suspect]
     Indication: RELAPSING-REMITTING MULTIPLE SCLEROSIS
     Dosage: UNK
     Dates: start: 1999
  2. BETASERON [Suspect]
     Indication: RELAPSING-REMITTING MULTIPLE SCLEROSIS
     Dosage: 0.3 MG, UNK
  3. COPAXONE [Concomitant]
     Dosage: 20 MG/ML, UNK
  4. PROVIGIL [Concomitant]
     Dosage: 200 MG, UNK
  5. BACLOFEN [Concomitant]
     Dosage: 10 MG, UNK
  6. TESTOSTERONE CYPIONATE [Concomitant]
     Dosage: 200 MG/ML, UNK
  7. LANTUS [Concomitant]
     Dosage: 100 /ML, UNK
  8. GLIMEPIRIDE [Concomitant]
     Dosage: 1 MG, UNK
  9. LISINOPRIL [Concomitant]
     Dosage: 20 MG, UNK
  10. LEVOTHYROXIN [Concomitant]
     Dosage: 150 MCG, UNK
  11. PULMICORT [Concomitant]
     Dosage: 200 MCG, UNK
  12. FLONASE [Concomitant]
     Dosage: 0.05 %, UNK
  13. ALBUTEROL [Concomitant]
     Dosage: 90 MCG
  14. LORATADINE [Concomitant]
     Dosage: UNK
  15. VITAMIN D [Concomitant]
     Dosage: 1000 UNIT UNK
  16. BABY ASPIRIN [Concomitant]
     Dosage: 81 MG, UNK
  17. NAPROXEN [Concomitant]
     Dosage: 275 MG, UNK
  18. GABAPENTIN [Concomitant]
     Dosage: 100 MG, UNK

REACTIONS (4)
  - Feeling abnormal [Recovered/Resolved]
  - Influenza [Recovered/Resolved]
  - Pneumonia [None]
  - Mobility decreased [Recovered/Resolved]
